FAERS Safety Report 18220860 (Version 1)
Quarter: 2020Q3

REPORT INFORMATION
  Report Type: Spontaneous
  Country: CN (occurrence: CN)
  Receive Date: 20200902
  Receipt Date: 20200902
  Transmission Date: 20201103
  Serious: Yes (Hospitalization, Other)
  Sender: FDA-Public Use
  Company Number: CN-PFIZER INC-2020335857

PATIENT
  Age: 35 Year
  Sex: Female
  Weight: 54 kg

DRUGS (10)
  1. PHARMORUBICIN [Suspect]
     Active Substance: EPIRUBICIN
     Indication: BREAST CANCER FEMALE
     Dosage: UNK (FIRST CHEMOTHERAPY )
     Dates: start: 2020, end: 202008
  2. OMEPRAZOLE. [Concomitant]
     Active Substance: OMEPRAZOLE
     Indication: PROPHYLAXIS OF NAUSEA AND VOMITING
     Dosage: 40 MG
     Route: 041
     Dates: start: 20200823, end: 20200823
  3. DEXAMETHASONE. [Concomitant]
     Active Substance: DEXAMETHASONE
     Dosage: 5 MG
     Route: 040
     Dates: start: 20200823, end: 20200823
  4. TROPISETRON [Concomitant]
     Active Substance: TROPISETRON
     Dosage: 5 MG, SINGLE
     Route: 040
     Dates: start: 20200823, end: 20200823
  5. SODIUM CHLORIDE. [Concomitant]
     Active Substance: SODIUM CHLORIDE
     Indication: VEHICLE SOLUTION USE
     Dosage: 100 ML, 1X/DAY (WITH EPIRUBICIN HYDROCHLORIDE )
     Route: 041
     Dates: start: 20200823, end: 20200823
  6. CYCLOPHOSPHAMIDE. [Suspect]
     Active Substance: CYCLOPHOSPHAMIDE
     Indication: BREAST CANCER FEMALE
     Dosage: 0.92 G, 1X/DAY
     Route: 041
     Dates: start: 20200823, end: 20200823
  7. SODIUM CHLORIDE. [Concomitant]
     Active Substance: SODIUM CHLORIDE
     Dosage: 100 ML(WITH OMEPRAZOLE)
     Route: 041
     Dates: start: 20200823, end: 20200823
  8. SODIUM CHLORIDE. [Concomitant]
     Active Substance: SODIUM CHLORIDE
     Dosage: 5 ML, SINGLE (WITH TROPISETRON)
     Route: 040
     Dates: start: 20200823, end: 20200823
  9. PHARMORUBICIN [Suspect]
     Active Substance: EPIRUBICIN
     Dosage: 130 MG, 1X/DAY
     Route: 041
     Dates: start: 20200823, end: 20200823
  10. SODIUM CHLORIDE. [Concomitant]
     Active Substance: SODIUM CHLORIDE
     Dosage: 100 ML, 1X/DAY (WITH CYCLOPHOSPHAMIDE)
     Route: 041
     Dates: start: 20200823, end: 20200823

REACTIONS (4)
  - Nausea [Recovering/Resolving]
  - Hepatic function abnormal [Recovering/Resolving]
  - Transaminases increased [Recovering/Resolving]
  - Vomiting [Recovering/Resolving]

NARRATIVE: CASE EVENT DATE: 20200818
